FAERS Safety Report 9338806 (Version 1)
Quarter: 2013Q2

REPORT INFORMATION
  Report Type: Report from Study
  Country: AU (occurrence: AU)
  Receive Date: 20130610
  Receipt Date: 20130610
  Transmission Date: 20140414
  Serious: Yes (Hospitalization, Other)
  Sender: FDA-Public Use
  Company Number: AU-ASTELLAS-2013US005854

PATIENT
  Age: 15 Year
  Sex: Male

DRUGS (5)
  1. AMBISOME [Suspect]
     Indication: LUNG INFECTION
     Dosage: UNK
     Route: 065
  2. VELCADE [Suspect]
     Indication: ACUTE MYELOID LEUKAEMIA
     Dosage: 1.3 MG/M2, CYCLIC
     Route: 040
     Dates: start: 20130110, end: 20130415
  3. CYTARABINE [Suspect]
     Indication: ACUTE MYELOID LEUKAEMIA
     Dosage: UNK
     Route: 037
     Dates: start: 20130110, end: 20130413
  4. CYTARABINE [Suspect]
     Dosage: 1000 MG/M2, CYCLIC
     Route: 042
  5. ETOPOSIDE [Suspect]
     Indication: ACUTE MYELOID LEUKAEMIA
     Dosage: 150 MG/M2, CYCLIC
     Route: 041
     Dates: start: 20130110, end: 20130412

REACTIONS (6)
  - Gamma-glutamyltransferase increased [Not Recovered/Not Resolved]
  - Dehydration [Unknown]
  - Pleural effusion [Unknown]
  - Renal failure acute [Not Recovered/Not Resolved]
  - Alanine aminotransferase increased [Not Recovered/Not Resolved]
  - Blood creatinine increased [Unknown]
